FAERS Safety Report 7422833-X (Version None)
Quarter: 2011Q2

REPORT INFORMATION
  Report Type: 
  Country: None (occurrence: None)
  Receive Date: 20110419
  Receipt Date: 20091030
  Transmission Date: 20111010
  Serious: Yes (Other)
  Sender: FDA-Public Use
  Company Number: US-BAYER-2011-009265

PATIENT
  Age: 66 Year
  Sex: Female
  Weight: 94.785 kg

DRUGS (27)
  1. TRASYLOL [Suspect]
     Indication: PRODUCT USED FOR UNKNOWN INDICATION
     Dosage: 200 ML, INTIAL TEST DOSE
     Route: 042
     Dates: start: 20050929, end: 20050929
  2. ALBUTEROL [Concomitant]
     Dosage: FOUR TIMES DAILY
     Route: 055
  3. PREDNISONE [Concomitant]
     Dosage: 5 MG, BID
     Route: 048
  4. PAPAVERINE [Concomitant]
     Dosage: 30MG/ML, 60MG
     Route: 042
     Dates: start: 20050929
  5. VANCOMYCIN [Concomitant]
     Dosage: 1 G, UNK
     Route: 042
     Dates: start: 20050929
  6. NITROGLYCERIN [Concomitant]
     Dosage: 0.2 MG, QD
     Route: 062
  7. PRIMACOR [Concomitant]
     Dosage: UNK
     Route: 042
     Dates: start: 20050929
  8. NITROGLYCERIN [Concomitant]
     Dosage: 50/250
     Route: 042
     Dates: start: 20050929
  9. HEPARIN [Concomitant]
     Dosage: 5000 U, UNK
     Route: 042
     Dates: start: 20050929
  10. DOPAMINE HCL [Concomitant]
     Dosage: 800MG/500ML 500MG
     Route: 042
     Dates: start: 20050929
  11. DOPAMINE HCL [Concomitant]
     Dosage: UNK
     Route: 042
     Dates: start: 20051003
  12. MAGNESIUM SULFATE [Concomitant]
     Dosage: 1 G, UNK
     Route: 042
     Dates: start: 20050929
  13. LOPRESSOR [Concomitant]
     Dosage: 25 MG, QD
     Route: 048
  14. REGULAR INSULIN [Concomitant]
     Dosage: UNK
     Dates: start: 20050929
  15. PROTAMINE SULFATE [Concomitant]
     Dosage: 250 MG, UNK
     Route: 042
     Dates: start: 20050929
  16. TRASYLOL [Suspect]
     Dosage: 200 ML LOADING DOSE
     Dates: start: 20050929, end: 20050929
  17. VICODIN [Concomitant]
     Dosage: 500 MG, QD
     Route: 048
  18. BUMEX [Concomitant]
     Dosage: 2 MG, QD
     Route: 048
  19. PAPAVERINE [Concomitant]
     Dosage: 30MG/ML, 120MG
     Route: 042
     Dates: start: 20050929
  20. MANNITOL [Concomitant]
     Dosage: 50 ML, UNK
     Route: 042
     Dates: start: 20050929
  21. SODIUM BICARBONATE [Concomitant]
     Dosage: 50 MEQ, UNK
     Route: 042
     Dates: start: 20050929
  22. GENTAMICIN [Concomitant]
     Dosage: 150 MG, UNK
     Route: 042
     Dates: start: 20050929
  23. PREMARIN [Concomitant]
     Dosage: 0.9 MG, QD
     Route: 048
  24. LISINOPRIL [Concomitant]
     Dosage: 10 MG, QD
     Route: 048
  25. ADVAIR DISKUS 100/50 [Concomitant]
     Dosage: 250 PER 50 DAILY
     Route: 055
  26. HUMULIN 70/30 [Concomitant]
     Indication: DIABETES MELLITUS
     Dosage: 58 U, BID
     Route: 058
  27. ASPIRIN [Concomitant]
     Dosage: 81 MG, QD
     Route: 048

REACTIONS (8)
  - RENAL FAILURE [None]
  - EMOTIONAL DISTRESS [None]
  - ANXIETY [None]
  - UNEVALUABLE EVENT [None]
  - FEAR [None]
  - PAIN [None]
  - MULTI-ORGAN FAILURE [None]
  - STRESS [None]
